FAERS Safety Report 7337054-9 (Version None)
Quarter: 2011Q1

REPORT INFORMATION
  Report Type: 
  Country: None (occurrence: None)
  Receive Date: 20110308
  Receipt Date: 20100819
  Transmission Date: 20110831
  Serious: Yes (Hospitalization, Other)
  Sender: FDA-Public Use
  Company Number: US-BAYER-201025148NA

PATIENT
  Sex: Female
  Weight: 92.517 kg

DRUGS (1)
  1. OCELLA [Suspect]
     Indication: ORAL CONTRACEPTION
     Dosage: 1 DF, QD
     Route: 048
     Dates: start: 20090804, end: 20091215

REACTIONS (4)
  - PULMONARY EMBOLISM [None]
  - CHEST PAIN [None]
  - DYSPNOEA [None]
  - MUSCULOSKELETAL CHEST PAIN [None]
